FAERS Safety Report 10359686 (Version 13)
Quarter: 2019Q4

REPORT INFORMATION
  Report Type: Spontaneous
  Country: US (occurrence: US)
  Receive Date: 20140804
  Receipt Date: 20191115
  Transmission Date: 20200122
  Serious: Yes (Hospitalization, Other)
  Sender: FDA-Public Use
  Company Number: US-PFIZER INC-2014213640

PATIENT
  Age: 62 Year
  Sex: Female
  Weight: 64 kg

DRUGS (38)
  1. LYRICA [Suspect]
     Active Substance: PREGABALIN
     Indication: OSTEOARTHRITIS
     Dosage: 400 MG, 2X/DAY (ONE IN MORNING AND ONE IN THE EVENING)
     Route: 048
  2. PRILOSEC [Concomitant]
     Active Substance: OMEPRAZOLE MAGNESIUM
     Dosage: UNK
     Dates: start: 2012
  3. PROMETHAZINE [Concomitant]
     Active Substance: PROMETHAZINE HYDROCHLORIDE
     Dosage: UNK
     Dates: start: 2012
  4. LYRICA [Suspect]
     Active Substance: PREGABALIN
     Dosage: 150 MG, 3X/DAY
     Dates: start: 20180808
  5. LEVOTHYROXINE. [Concomitant]
     Active Substance: LEVOTHYROXINE
     Dosage: UNK
     Dates: start: 1990
  6. FLUOXETINE [Concomitant]
     Active Substance: FLUOXETINE HYDROCHLORIDE
     Dosage: UNK
     Dates: start: 1998
  7. VITAMIN D [Concomitant]
     Active Substance: VITAMIN D NOS
     Dosage: UNK
     Dates: start: 1970
  8. DULOXETINE. [Concomitant]
     Active Substance: DULOXETINE
     Indication: PAIN
  9. DULOXETINE. [Concomitant]
     Active Substance: DULOXETINE
     Indication: FIBROMYALGIA
  10. HYDROCODONE BITARTRATE W/PARACETAMOL [Concomitant]
     Active Substance: ACETAMINOPHEN\HYDROCODONE BITARTRATE
     Dosage: UNK ((HYDROCODONE BITARTRATE= 10,PARACETAMOL= 325)MG (10MG IN IT MAKES SLEEPY)
  11. METHADONE [Concomitant]
     Active Substance: METHADONE HYDROCHLORIDE
     Indication: RHEUMATOID ARTHRITIS
     Dosage: 10 MG, 2X/DAY
     Dates: start: 2008
  12. METHADONE [Concomitant]
     Active Substance: METHADONE HYDROCHLORIDE
     Dosage: 25 MG, DAILY (10 MG IN MORNING, 5 MG IN AFTERNOON AND 10 MG IN EVENING)
     Route: 048
  13. CLONAZEPAM. [Concomitant]
     Active Substance: CLONAZEPAM
     Dosage: 1 MG, 1X/DAY
  14. PROZAC [Concomitant]
     Active Substance: FLUOXETINE HYDROCHLORIDE
     Dosage: UNK
     Dates: start: 1990
  15. PRILOSEC [Concomitant]
     Active Substance: OMEPRAZOLE MAGNESIUM
     Dosage: 40 MG, 2X/DAY
  16. PROMETHAZINE [Concomitant]
     Active Substance: PROMETHAZINE HYDROCHLORIDE
     Dosage: 25 MG, AS NEEDED
  17. MAXALT [Concomitant]
     Active Substance: RIZATRIPTAN BENZOATE
     Dosage: UNK
     Dates: start: 2012
  18. CLONAZEPAM. [Concomitant]
     Active Substance: CLONAZEPAM
     Dosage: 20 MG, 1X/DAY
  19. LEVOTHYROXINE. [Concomitant]
     Active Substance: LEVOTHYROXINE
     Indication: THYROID DISORDER
     Dosage: 0.242 MG, UNK
     Dates: start: 1989
  20. NORCO [Concomitant]
     Active Substance: ACETAMINOPHEN\HYDROCODONE BITARTRATE
     Dosage: 10/325 MG 1 DF, 4X/DAY
  21. VITAMIN B12 COMPLEX [Concomitant]
     Dosage: UNK
     Dates: start: 1990
  22. ACETAMINOPHEN. [Concomitant]
     Active Substance: ACETAMINOPHEN
     Indication: MIGRAINE
     Dosage: 1000 MG, 1X/DAY
  23. LYRICA [Suspect]
     Active Substance: PREGABALIN
     Indication: MIGRAINE
     Dosage: 150 MG, 2X/DAY
     Route: 048
     Dates: start: 2005
  24. LYRICA [Suspect]
     Active Substance: PREGABALIN
     Indication: FIBROMYALGIA
     Dosage: 150 MG, UNK
     Route: 048
  25. PROZAC [Concomitant]
     Active Substance: FLUOXETINE HYDROCHLORIDE
     Dosage: 80 MG, DAILY
     Dates: start: 1989
  26. NORCO [Concomitant]
     Active Substance: ACETAMINOPHEN\HYDROCODONE BITARTRATE
     Dosage: UNK
     Dates: start: 2010
  27. MAXALT [Concomitant]
     Active Substance: RIZATRIPTAN BENZOATE
     Indication: MIGRAINE
     Dosage: 10 MG, AS NEEDED
  28. SENNA TEA [Concomitant]
     Indication: CONSTIPATION
     Dosage: UNK, AS NEEDED
  29. SENNA TEA [Concomitant]
     Dosage: UNK
     Dates: start: 2013
  30. DULOXETINE. [Concomitant]
     Active Substance: DULOXETINE
     Indication: ANXIETY
     Dosage: 30 MG, 2X/DAY
  31. LYRICA [Suspect]
     Active Substance: PREGABALIN
     Indication: NEURALGIA
     Dosage: 150 MG, 2X/DAY
     Dates: start: 2010
  32. METHADONE [Concomitant]
     Active Substance: METHADONE HYDROCHLORIDE
     Indication: OSTEOARTHRITIS
     Dosage: 30 MG, 3X/DAY
  33. METHADONE [Concomitant]
     Active Substance: METHADONE HYDROCHLORIDE
     Dosage: UNK
     Dates: start: 2010
  34. CLONAZEPAM. [Concomitant]
     Active Substance: CLONAZEPAM
     Dosage: UNK
     Dates: start: 2012
  35. LEVOTHYROXINE. [Concomitant]
     Active Substance: LEVOTHYROXINE
     Dosage: 0.1 MG, DAILY
  36. FLUOXETINE [Concomitant]
     Active Substance: FLUOXETINE HYDROCHLORIDE
     Dosage: 20 MG, 4X/DAY
  37. VITAMIN C [Concomitant]
     Active Substance: ASCORBIC ACID
     Dosage: UNK
     Dates: start: 1970
  38. DULOXETINE. [Concomitant]
     Active Substance: DULOXETINE
     Indication: DEPRESSION

REACTIONS (26)
  - Limb discomfort [Not Recovered/Not Resolved]
  - Gallbladder disorder [Recovered/Resolved]
  - Abdominal discomfort [Recovered/Resolved]
  - Pain [Not Recovered/Not Resolved]
  - Head discomfort [Unknown]
  - Skin discolouration [Unknown]
  - Overdose [Unknown]
  - Pharyngitis streptococcal [Recovered/Resolved]
  - Dizziness [Unknown]
  - Paraesthesia [Unknown]
  - Diarrhoea [Unknown]
  - Appendix disorder [Recovered/Resolved]
  - Therapeutic product effect incomplete [Not Recovered/Not Resolved]
  - Cataract [Unknown]
  - Headache [Unknown]
  - Umbilical hernia [Not Recovered/Not Resolved]
  - Gastrointestinal disorder [Recovered/Resolved]
  - Malaise [Not Recovered/Not Resolved]
  - Rheumatoid arthritis [Not Recovered/Not Resolved]
  - Arthritis [Unknown]
  - Back pain [Not Recovered/Not Resolved]
  - Nausea [Unknown]
  - Crying [Recovered/Resolved]
  - Hyperacusis [Unknown]
  - Drug withdrawal syndrome [Recovered/Resolved]
  - Pain in extremity [Not Recovered/Not Resolved]

NARRATIVE: CASE EVENT DATE: 2005
